FAERS Safety Report 22157122 (Version 3)
Quarter: 2023Q2

REPORT INFORMATION
  Report Type: Spontaneous
  Country: US (occurrence: US)
  Receive Date: 20230330
  Receipt Date: 20230518
  Transmission Date: 20230722
  Serious: Yes (Death, Other)
  Sender: FDA-Public Use
  Company Number: US-AMGEN-USASP2023052745

PATIENT
  Age: 73 Year
  Sex: Male
  Weight: 74.376 kg

DRUGS (1)
  1. NEULASTA [Suspect]
     Active Substance: PEGFILGRASTIM
     Indication: Neutropenia
     Dosage: UNK
     Route: 065

REACTIONS (2)
  - Respiratory distress [Fatal]
  - Device adhesion issue [Unknown]

NARRATIVE: CASE EVENT DATE: 20230313
